FAERS Safety Report 16111365 (Version 1)
Quarter: 2019Q1

REPORT INFORMATION
  Report Type: Spontaneous
  Country: US (occurrence: US)
  Receive Date: 20190325
  Receipt Date: 20190325
  Transmission Date: 20190418
  Serious: Yes (Hospitalization, Other)
  Sender: FDA-Public Use
  Company Number: US-DRREDDYS-USA/USA/19/0108877

PATIENT
  Age: 44 Year
  Sex: Female

DRUGS (5)
  1. TIZANIDINE. [Suspect]
     Active Substance: TIZANIDINE
     Indication: MUSCULOSKELETAL DISCOMFORT
     Dosage: 12 MG PO DAILY
     Route: 048
  2. TIZANIDINE. [Suspect]
     Active Substance: TIZANIDINE
     Indication: MUSCLE SPASMS
  3. OXYCODONE/ACETAMINOPHEN [Concomitant]
     Active Substance: ACETAMINOPHEN\OXYCODONE HYDROCHLORIDE
     Indication: BACK PAIN
     Dosage: 5/325 MG PO Q8 HOURS AS NEEDED
     Route: 048
  4. TRAZODONE [Concomitant]
     Active Substance: TRAZODONE HYDROCHLORIDE
     Indication: PRODUCT USED FOR UNKNOWN INDICATION
     Dosage: 50 MG PO NIGHTLY
     Route: 048
  5. ZOLPIDEM [Concomitant]
     Active Substance: ZOLPIDEM\ZOLPIDEM TARTRATE
     Indication: INSOMNIA
     Dosage: 5 MG PO NIGHTLY AS NEEDED
     Route: 048

REACTIONS (5)
  - Fatigue [Recovering/Resolving]
  - Syncope [Recovering/Resolving]
  - Hypotension [Unknown]
  - Dizziness [Recovering/Resolving]
  - Sinus bradycardia [Recovering/Resolving]
